FAERS Safety Report 7242906-4 (Version None)
Quarter: 2011Q1

REPORT INFORMATION
  Report Type: 
  Country: None (occurrence: None)
  Receive Date: 20110125
  Receipt Date: 20110118
  Transmission Date: 20110831
  Serious: Yes (Life-Threatening, Hospitalization, Other)
  Sender: FDA-Public Use
  Company Number: KR-JNJFOC-20101101381

PATIENT
  Age: 76 Year
  Sex: Female

DRUGS (1)
  1. DURAGESIC-100 [Suspect]
     Indication: BACK PAIN
     Dosage: TWO FENTANYL PATCHES OF 50 UG/HR(20 CM2)
     Route: 062

REACTIONS (8)
  - RESPIRATORY ACIDOSIS [None]
  - NAUSEA [None]
  - DRUG ABUSE [None]
  - VOMITING [None]
  - MIOSIS [None]
  - ASTHENIA [None]
  - MENTAL STATUS CHANGES [None]
  - BLOOD GLUCOSE INCREASED [None]
